FAERS Safety Report 12194925 (Version 1)
Quarter: 2016Q1

REPORT INFORMATION
  Report Type: Spontaneous
  Country: US (occurrence: None)
  Receive Date: 20160318
  Receipt Date: 20160318
  Transmission Date: 20160526
  Serious: Yes (Other)
  Sender: FDA-Public Use
  Company Number: None

PATIENT
  Age: 74 Year
  Sex: Female

DRUGS (5)
  1. WARFARIN [Concomitant]
     Active Substance: WARFARIN
  2. HYDROXYUREA. [Concomitant]
     Active Substance: HYDROXYUREA
  3. CIPROFLOXACIN. [Suspect]
     Active Substance: CIPROFLOXACIN
     Indication: URINARY TRACT INFECTION
     Dosage: 1 TABLET BID ORAL
     Route: 048
     Dates: start: 20160314, end: 20160315
  4. BETHANECHOL [Concomitant]
     Active Substance: BETHANECHOL
  5. FUROSEMIDE. [Concomitant]
     Active Substance: FUROSEMIDE

REACTIONS (1)
  - Erythema [None]

NARRATIVE: CASE EVENT DATE: 20160315
